FAERS Safety Report 18234215 (Version 1)
Quarter: 2020Q3

REPORT INFORMATION
  Report Type: Spontaneous
  Country: US (occurrence: US)
  Receive Date: 20200904
  Receipt Date: 20200904
  Transmission Date: 20201103
  Serious: Yes (Other)
  Sender: FDA-Public Use
  Company Number: US-BRISTOL-MYERS SQUIBB COMPANY-BMS-2020-068806

PATIENT
  Sex: Female

DRUGS (1)
  1. COUMADIN [Suspect]
     Active Substance: WARFARIN SODIUM
     Indication: CARDIAC DISORDER
     Dosage: UNK
     Route: 065

REACTIONS (2)
  - Cardiac disorder [Unknown]
  - Drug ineffective [Unknown]
